FAERS Safety Report 11240586 (Version 8)
Quarter: 2015Q4

REPORT INFORMATION
  Report Type: Report from Study
  Country: US (occurrence: US)
  Receive Date: 20150706
  Receipt Date: 20151006
  Transmission Date: 20160304
  Serious: Yes (Hospitalization)
  Sender: FDA-Public Use
  Company Number: US-VERTEX PHARMACEUTICALS-2015-002796

PATIENT
  Age: 16 Year
  Sex: Female
  Weight: 44 kg

DRUGS (46)
  1. CREON 24 [Concomitant]
     Active Substance: AMYLASE\LIPASE\PROTEASE
     Dosage: UNK
     Route: 048
     Dates: start: 20131023
  2. CIPRO [Concomitant]
     Active Substance: CIPROFLOXACIN HYDROCHLORIDE
     Dosage: 500 MG, QD
     Route: 048
  3. ALEVE [Concomitant]
     Active Substance: NAPROXEN SODIUM
     Indication: HEADACHE
     Dosage: UNK
     Route: 048
     Dates: start: 20150506, end: 20150624
  4. AQUADEKS [Concomitant]
     Dosage: UNK
     Route: 048
     Dates: start: 200709
  5. FERROUS SULFATE [Concomitant]
     Active Substance: FERROUS SULFATE\FERROUS SULFATE, DRIED
     Dosage: 325 MG, BID
     Route: 048
  6. ZITHROMAX [Concomitant]
     Active Substance: AZITHROMYCIN DIHYDRATE
     Indication: LUNG DISORDER
     Dosage: UNK
     Route: 048
     Dates: start: 2009
  7. COLIMYCIN [Concomitant]
     Indication: CANDIDA INFECTION
  8. FLUCONAZOLE. [Concomitant]
     Active Substance: FLUCONAZOLE
     Indication: CANDIDA INFECTION
     Dosage: 200 MG, QD
     Route: 048
  9. VX-770/VX-661 [Suspect]
     Active Substance: INVESTIGATIONAL PRODUCT
     Indication: CYSTIC FIBROSIS
     Dosage: 150 MG, Q12HRS
     Route: 048
     Dates: start: 20150506, end: 20150624
  10. ALBUTEROL HFA [Concomitant]
     Active Substance: ALBUTEROL SULFATE
     Dosage: UNK
     Route: 048
     Dates: start: 20121017
  11. PULMOZYME [Concomitant]
     Active Substance: DORNASE ALFA
     Dosage: UNK
     Route: 055
     Dates: start: 20020725
  12. ALBUTEROL. [Concomitant]
     Active Substance: ALBUTEROL
     Dosage: UNK
     Route: 055
     Dates: start: 20020620
  13. ADVAIR 230 [Concomitant]
     Indication: LUNG DISORDER
     Dosage: UNK
     Route: 055
     Dates: start: 20130820
  14. AZITHROMYCIN [Concomitant]
     Active Substance: AZITHROMYCIN ANHYDROUS
     Dosage: 500 MG, M/W/F
     Route: 048
  15. VEST [Concomitant]
     Indication: LUNG DISORDER
     Dosage: UNK
     Route: 065
     Dates: start: 2002
  16. TYLENOL [Concomitant]
     Active Substance: ACETAMINOPHEN
     Indication: HEADACHE
     Dosage: UNK
     Route: 048
     Dates: start: 20150625, end: 20150701
  17. CAYSTON [Concomitant]
     Active Substance: AZTREONAM
     Dosage: 75 MG, TID
     Route: 055
  18. HUMALOG [Concomitant]
     Active Substance: INSULIN LISPRO
     Dosage: UNK
     Route: 058
     Dates: start: 201305
  19. VITAMIN D [Concomitant]
     Active Substance: CHOLECALCIFEROL
     Indication: NUTRITIONAL SUPPLEMENTATION
     Dosage: 1000 IU, BID
     Route: 048
  20. ALBUTEROL. [Concomitant]
     Active Substance: ALBUTEROL
     Indication: LUNG DISORDER
     Dosage: 2.5 MG, BID PRE-MIX (NEBULIZED WITH VEST)
     Route: 055
  21. HYPERSAL [Concomitant]
     Indication: LUNG DISORDER
     Dosage: 4 ML, BID
     Route: 055
  22. HYPERSAL [Concomitant]
     Dosage: UNK
     Route: 055
     Dates: start: 20090115
  23. SODIUM CHLORIDE. [Concomitant]
     Active Substance: SODIUM CHLORIDE
     Dosage: 1 VIAL BID
     Route: 055
  24. FERROUS SULFATE [Concomitant]
     Active Substance: FERROUS SULFATE\FERROUS SULFATE, DRIED
     Indication: VITAMIN A DEFICIENCY
     Dosage: 325 MG, QD
     Route: 048
     Dates: end: 20150625
  25. IBUPROFEN. [Concomitant]
     Active Substance: IBUPROFEN
     Indication: HEADACHE
     Dosage: UNK
     Route: 048
     Dates: start: 20150625, end: 20150630
  26. VX-661/VX-770 [Suspect]
     Active Substance: INVESTIGATIONAL PRODUCT
     Indication: CYSTIC FIBROSIS
     Dosage: 100 MG, QD
     Route: 048
     Dates: start: 20150506, end: 20150624
  27. NASONEX [Concomitant]
     Active Substance: MOMETASONE FUROATE
     Indication: RHINITIS ALLERGIC
     Dosage: 100 ?G, QD EACH NOSTRIL
     Route: 045
  28. ALBUTEROL HFA [Concomitant]
     Active Substance: ALBUTEROL SULFATE
     Indication: ASTHMA
     Dosage: 2 PUFFS Q4HRS PRN
     Route: 055
  29. AQUADEKS [Concomitant]
     Indication: NUTRITIONAL SUPPLEMENTATION
     Dosage: 2 DF, QD
     Route: 048
  30. VITAMIN D [Concomitant]
     Active Substance: CHOLECALCIFEROL
     Dosage: UNK
     Route: 048
     Dates: start: 2009
  31. FERROUS SULFATE [Concomitant]
     Active Substance: FERROUS SULFATE\FERROUS SULFATE, DRIED
     Dosage: UNK
     Route: 048
     Dates: start: 20150708
  32. SALINE ORAL OTC [Concomitant]
     Active Substance: SODIUM CHLORIDE
     Dosage: UNK
     Dates: start: 201506, end: 201506
  33. FLUCONAZOLE. [Concomitant]
     Active Substance: FLUCONAZOLE
     Indication: STENOTROPHOMONAS INFECTION
     Dosage: UNK
     Route: 048
     Dates: start: 20150718
  34. NASONEX [Concomitant]
     Active Substance: MOMETASONE FUROATE
     Dosage: UNK
     Route: 045
     Dates: start: 20140506
  35. PREVACID [Concomitant]
     Active Substance: LANSOPRAZOLE
     Dosage: UNK
     Route: 048
     Dates: start: 20150625
  36. LANTUS [Concomitant]
     Active Substance: INSULIN GLARGINE
  37. NAPROXEN. [Concomitant]
     Active Substance: NAPROXEN
     Indication: HEADACHE
     Dosage: UNK
     Dates: start: 2015, end: 20150625
  38. OMEPRAZOLE. [Concomitant]
     Active Substance: OMEPRAZOLE
     Indication: PANCREATIC INSUFFICIENCY
     Dosage: UNK
     Route: 048
     Dates: start: 201210
  39. ZOFRAN [Concomitant]
     Active Substance: ONDANSETRON HYDROCHLORIDE
     Indication: NAUSEA
     Dosage: UNK
     Dates: start: 201506
  40. ZOFRAN [Concomitant]
     Active Substance: ONDANSETRON HYDROCHLORIDE
     Indication: VOMITING
  41. HUMALOG [Concomitant]
     Active Substance: INSULIN LISPRO
     Indication: TYPE 1 DIABETES MELLITUS
     Dosage: 100 UNIT/ML AS DIRECTED WITH MEALS
     Route: 058
  42. PULMOZYME [Concomitant]
     Active Substance: DORNASE ALFA
     Indication: LUNG DISORDER
     Dosage: 2.5 MG, QD
     Route: 055
  43. ADVAIR 230 [Concomitant]
     Indication: ASTHMA
     Dosage: 2 PUFFS BID
     Route: 055
  44. CREON 24 [Concomitant]
     Active Substance: AMYLASE\LIPASE\PROTEASE
     Indication: PANCREATIC INSUFFICIENCY
     Dosage: 4 CAPS WITH MEALS 5-6 DAYS QD
     Route: 048
  45. COLIMYCIN [Concomitant]
     Indication: STENOTROPHOMONAS INFECTION
     Dosage: UNK
     Route: 055
     Dates: start: 20150717
  46. LIDOCAINE. [Concomitant]
     Active Substance: LIDOCAINE
     Dosage: UNK
     Route: 061
     Dates: start: 20150625, end: 20150628

REACTIONS (2)
  - Benign intracranial hypertension [Recovered/Resolved]
  - Infective pulmonary exacerbation of cystic fibrosis [Recovered/Resolved]

NARRATIVE: CASE EVENT DATE: 20150625
